FAERS Safety Report 7019116-9 (Version None)
Quarter: 2010Q3

REPORT INFORMATION
  Report Type: 
  Country: None (occurrence: None)
  Receive Date: 20100928
  Receipt Date: 20100921
  Transmission Date: 20110219
  Serious: Yes (Hospitalization)
  Sender: FDA-Public Use
  Company Number: B0623853A

PATIENT
  Sex: Female
  Weight: 41 kg

DRUGS (12)
  1. TYKERB [Suspect]
     Indication: BREAST CANCER
     Dosage: 1250MG PER DAY
     Route: 048
     Dates: start: 20091218, end: 20100104
  2. TYKERB [Suspect]
     Dosage: 1250MG PER DAY
     Route: 048
     Dates: start: 20100219
  3. XELODA [Suspect]
     Indication: BREAST CANCER
     Dosage: 4800MG PER DAY
     Route: 048
     Dates: start: 20091218, end: 20100104
  4. AMOBAN [Concomitant]
     Indication: INSOMNIA
     Route: 048
     Dates: start: 20091218
  5. PYDOXAL [Concomitant]
     Route: 048
     Dates: start: 20091218, end: 20100202
  6. MUCODYNE [Concomitant]
     Route: 048
     Dates: start: 20091218
  7. ALLEGRA [Concomitant]
     Indication: RHINITIS
     Route: 048
     Dates: start: 20091218
  8. GASTER D [Concomitant]
     Indication: NAUSEA
     Route: 048
     Dates: start: 20091218
  9. NAUZELIN [Concomitant]
     Indication: NAUSEA
     Route: 048
     Dates: start: 20091218
  10. MYSER [Concomitant]
     Route: 061
     Dates: start: 20091218, end: 20100228
  11. HIRUDOID [Concomitant]
     Route: 061
     Dates: start: 20091218, end: 20100228
  12. FERROMIA [Concomitant]
     Route: 048
     Dates: start: 20091218, end: 20100103

REACTIONS (8)
  - DIARRHOEA [None]
  - HAEMOGLOBIN DECREASED [None]
  - MALAISE [None]
  - MOUTH HAEMORRHAGE [None]
  - PANCYTOPENIA [None]
  - PETECHIAE [None]
  - PLATELET COUNT DECREASED [None]
  - WHITE BLOOD CELL COUNT DECREASED [None]
